FAERS Safety Report 8367990-6 (Version None)
Quarter: 2012Q2

REPORT INFORMATION
  Report Type: 
  Country: None (occurrence: None)
  Receive Date: 20120516
  Receipt Date: 20120501
  Transmission Date: 20120825
  Serious: Yes (Other)
  Sender: FDA-Public Use
  Company Number: 2012AP001276

PATIENT
  Age: 51 Year
  Sex: Female

DRUGS (1)
  1. LITHIUM CARBONATE [Suspect]
     Indication: BIPOLAR DISORDER

REACTIONS (11)
  - NAUSEA [None]
  - VOMITING [None]
  - ABDOMINAL PAIN LOWER [None]
  - CEREBELLAR SYNDROME [None]
  - TOXICITY TO VARIOUS AGENTS [None]
  - AMYLASE INCREASED [None]
  - TREMOR [None]
  - BLOOD CREATININE INCREASED [None]
  - DIARRHOEA [None]
  - VITREOUS FLOATERS [None]
  - LIPASE INCREASED [None]
